FAERS Safety Report 17361546 (Version 1)
Quarter: 2020Q1

REPORT INFORMATION
  Report Type: Spontaneous
  Country: US (occurrence: US)
  Receive Date: 20200117
  Receipt Date: 20200117
  Transmission Date: 20200409
  Serious: Yes (Hospitalization)
  Sender: FDA-Public Use
  Company Number: None

PATIENT
  Age: 75 Year
  Sex: Female

DRUGS (25)
  1. FERROUS SULF [Concomitant]
     Active Substance: FERROUS SULFATE
  2. LASIX [Concomitant]
     Active Substance: FUROSEMIDE
  3. FUROSEMIDE. [Concomitant]
     Active Substance: FUROSEMIDE
  4. HYDRALAZINE [Concomitant]
     Active Substance: HYDRALAZINE HYDROCHLORIDE
  5. POT CHLORIDE [Concomitant]
     Active Substance: POTASSIUM CHLORIDE
  6. VITAMIN D3 [Concomitant]
     Active Substance: CHOLECALCIFEROL
  7. CALCIUM [Concomitant]
     Active Substance: CALCIUM
  8. CARVEDILOL. [Concomitant]
     Active Substance: CARVEDILOL
  9. ELIQUIS [Concomitant]
     Active Substance: APIXABAN
  10. LUMIGAN [Concomitant]
     Active Substance: BIMATOPROST
  11. METFORMIN [Concomitant]
     Active Substance: METFORMIN HYDROCHLORIDE
  12. METOPROLOL TARTRATE. [Concomitant]
     Active Substance: METOPROLOL TARTRATE
  13. NOVOLOG [Concomitant]
     Active Substance: INSULIN ASPART
  14. OMEPRAZOLE. [Concomitant]
     Active Substance: OMEPRAZOLE
  15. OYSTER SHELL [Concomitant]
     Active Substance: OSTREA EDULIS SHELL
  16. PANTOPRAZOLE [Concomitant]
     Active Substance: PANTOPRAZOLE
  17. REFRESH OPTI DRO [Concomitant]
  18. ALLOPURINOL. [Concomitant]
     Active Substance: ALLOPURINOL
  19. ESBRIET [Suspect]
     Active Substance: PIRFENIDONE
     Indication: IDIOPATHIC PULMONARY FIBROSIS
     Dosage: ?          OTHER DOSE:3 CS;?
     Route: 048
     Dates: start: 20160930
  20. ASPIRIN. [Concomitant]
     Active Substance: ASPIRIN
  21. ATORVASTATIN [Concomitant]
     Active Substance: ATORVASTATIN
  22. CYCLOBENZAPR [Concomitant]
     Active Substance: CYCLOBENZAPRINE
  23. OMEGA 3 [Concomitant]
     Active Substance: OMEGA-3 FATTY ACIDS
  24. SIMBRINZA [Concomitant]
     Active Substance: BRIMONIDINE TARTRATE\BRINZOLAMIDE
  25. VITAMIN C [Concomitant]
     Active Substance: ASCORBIC ACID

REACTIONS (1)
  - Hypertension [None]

NARRATIVE: CASE EVENT DATE: 201906
